FAERS Safety Report 16682242 (Version 6)
Quarter: 2020Q2

REPORT INFORMATION
  Report Type: Report from Study
  Country: US (occurrence: US)
  Receive Date: 20190808
  Receipt Date: 20200618
  Transmission Date: 20200713
  Serious: No
  Sender: FDA-Public Use
  Company Number: PHEH2019US032840

PATIENT
  Sex: Female

DRUGS (3)
  1. COSENTYX [Suspect]
     Active Substance: SECUKINUMAB
     Dosage: 150 MG, QMO
     Route: 058
  2. COSENTYX [Suspect]
     Active Substance: SECUKINUMAB
     Indication: ANKYLOSING SPONDYLITIS
     Dosage: UNK UNK, QW
     Route: 058
  3. COSENTYX [Suspect]
     Active Substance: SECUKINUMAB
     Dosage: UNK, Q4W
     Route: 058

REACTIONS (7)
  - Cough [Recovered/Resolved]
  - Device issue [Unknown]
  - Meniscus injury [Recovering/Resolving]
  - Viral infection [Recovered/Resolved]
  - Iritis [Recovered/Resolved]
  - Back pain [Recovering/Resolving]
  - Concomitant disease aggravated [Recovered/Resolved]
